FAERS Safety Report 18947886 (Version 2)
Quarter: 2021Q1

REPORT INFORMATION
  Report Type: Spontaneous
  Country: ES (occurrence: ES)
  Receive Date: 20210227
  Receipt Date: 20210311
  Transmission Date: 20210420
  Serious: Yes (Life-Threatening, Hospitalization, Disabling)
  Sender: FDA-Public Use
  Company Number: ES-ROCHE-2777698

PATIENT
  Age: 80 Year
  Sex: Female
  Weight: 77.2 kg

DRUGS (1)
  1. ROACTEMRA [Suspect]
     Active Substance: TOCILIZUMAB
     Indication: GIANT CELL ARTERITIS
     Dosage: SEMANA
     Route: 058
     Dates: start: 20200507, end: 20210203

REACTIONS (4)
  - Diverticular perforation [Recovering/Resolving]
  - Portal vein phlebitis [Recovering/Resolving]
  - Diverticulitis [Recovering/Resolving]
  - Sepsis [Recovering/Resolving]

NARRATIVE: CASE EVENT DATE: 20210205
